FAERS Safety Report 17994878 (Version 2)
Quarter: 2021Q1

REPORT INFORMATION
  Report Type: Spontaneous
  Country: CA (occurrence: CA)
  Receive Date: 20200708
  Receipt Date: 20210222
  Transmission Date: 20210419
  Serious: Yes (Hospitalization, Other)
  Sender: FDA-Public Use
  Company Number: CA-TEVA-2020-CA-1797663

PATIENT
  Age: 79 Year
  Sex: Male
  Weight: 60 kg

DRUGS (1)
  1. ETOPOSIDE INJECTION [Suspect]
     Active Substance: ETOPOSIDE
     Indication: NEOPLASM MALIGNANT
     Route: 042

REACTIONS (12)
  - Chest pain [Unknown]
  - Hypoxia [Unknown]
  - Erythema [Unknown]
  - Pulmonary oedema [Unknown]
  - Rales [Unknown]
  - Bundle branch block left [Unknown]
  - Acute cardiac event [Unknown]
  - Drug hypersensitivity [Unknown]
  - Dyspnoea [Unknown]
  - Tachycardia [Unknown]
  - Traumatic lung injury [Unknown]
  - Capillary leak syndrome [Unknown]
